FAERS Safety Report 23410480 (Version 2)
Quarter: 2024Q1

REPORT INFORMATION
  Report Type: Spontaneous
  Country: US (occurrence: US)
  Receive Date: 20240117
  Receipt Date: 20240201
  Transmission Date: 20240410
  Serious: Yes (Other)
  Sender: FDA-Public Use
  Company Number: US-JAZZ PHARMACEUTICALS-2024-US-000634

PATIENT
  Sex: Female

DRUGS (1)
  1. XYREM [Suspect]
     Active Substance: SODIUM OXYBATE
     Indication: Product used for unknown indication
     Dosage: UNK
     Dates: start: 20231216

REACTIONS (7)
  - Toxicity to various agents [Recovering/Resolving]
  - Hallucination [Unknown]
  - Delusion [Unknown]
  - Depressed level of consciousness [Unknown]
  - Confusional state [Unknown]
  - Dysarthria [Unknown]
  - Pain [Unknown]
